FAERS Safety Report 11071705 (Version 1)
Quarter: 2015Q2

REPORT INFORMATION
  Report Type: Spontaneous
  Country: CO (occurrence: CO)
  Receive Date: 20150428
  Receipt Date: 20150428
  Transmission Date: 20150821
  Serious: Yes (Hospitalization)
  Sender: FDA-Public Use
  Company Number: CO-BIOGENIDEC-2015BI038880

PATIENT
  Age: 32 Year
  Sex: Male

DRUGS (1)
  1. AVONEX [Suspect]
     Active Substance: INTERFERON BETA-1A
     Indication: PRODUCT USED FOR UNKNOWN INDICATION
     Route: 030
     Dates: start: 2012

REACTIONS (9)
  - Pyrexia [Recovered/Resolved]
  - Headache [Recovered/Resolved]
  - Intervertebral disc operation [Recovered/Resolved]
  - Micturition urgency [Recovered/Resolved]
  - Chills [Recovered/Resolved]
  - Multiple sclerosis relapse [Recovered/Resolved]
  - Abasia [Not Recovered/Not Resolved]
  - Urinary tract infection [Recovered/Resolved]
  - Pain [Recovered/Resolved]

NARRATIVE: CASE EVENT DATE: 2012
